FAERS Safety Report 21405263 (Version 1)
Quarter: 2022Q4

REPORT INFORMATION
  Report Type: Spontaneous
  Country: US (occurrence: US)
  Receive Date: 20221004
  Receipt Date: 20221004
  Transmission Date: 20230112
  Serious: No
  Sender: FDA-Public Use
  Company Number: US-GSKCCFUS-Case-01510761_AE-85879

PATIENT
  Age: 82 Year
  Sex: Female

DRUGS (1)
  1. TRELEGY ELLIPTA [Suspect]
     Active Substance: FLUTICASONE FUROATE\UMECLIDINIUM BROMIDE\VILANTEROL TRIFENATATE
     Indication: Product used for unknown indication
     Dosage: UNK

REACTIONS (8)
  - Rhinorrhoea [Unknown]
  - Hypersensitivity [Unknown]
  - Dysphonia [Unknown]
  - Laryngitis [Unknown]
  - Fatigue [Unknown]
  - Gastrointestinal disorder [Unknown]
  - Rash [Unknown]
  - Cough [Unknown]
